FAERS Safety Report 4382178-1 (Version None)
Quarter: 2004Q2

REPORT INFORMATION
  Report Type: 
  Country: None (occurrence: None)
  Receive Date: 20040618
  Receipt Date: 20040618
  Transmission Date: 20050107
  Serious: Yes (Other)
  Sender: FDA-Public Use
  Company Number: None

PATIENT
  Age: 32 Year
  Sex: Female
  Weight: 83.9154 kg

DRUGS (1)
  1. ZOLOFT [Suspect]
     Dosage: 1 TABLET ONCE A DAY ORAL
     Route: 048
     Dates: start: 20030501

REACTIONS (6)
  - DRUG WITHDRAWAL SYNDROME [None]
  - MARKEDLY REDUCED DIETARY INTAKE [None]
  - PAIN [None]
  - SUICIDAL IDEATION [None]
  - WEIGHT DECREASED [None]
  - WEIGHT INCREASED [None]
